FAERS Safety Report 17064804 (Version 1)
Quarter: 2019Q4

REPORT INFORMATION
  Report Type: Report from Study
  Country: US (occurrence: US)
  Receive Date: 20191122
  Receipt Date: 20191122
  Transmission Date: 20200122
  Serious: Yes (Other)
  Sender: FDA-Public Use
  Company Number: US-BAYER-2019-206693

PATIENT
  Age: 68 Year
  Sex: Female
  Weight: 78.01 kg

DRUGS (3)
  1. ELIQUIS [Concomitant]
     Active Substance: APIXABAN
     Dosage: UNK
  2. ADEMPAS [Suspect]
     Active Substance: RIOCIGUAT
     Indication: PULMONARY ARTERIAL HYPERTENSION
     Dosage: UNK
     Dates: start: 20190702
  3. ADEMPAS [Suspect]
     Active Substance: RIOCIGUAT
     Indication: PULMONARY ARTERIAL HYPERTENSION
     Dosage: 1.5 MG, TID
     Route: 048
     Dates: start: 2019

REACTIONS (9)
  - Oesophageal discomfort [Unknown]
  - Pain in extremity [Unknown]
  - Arthralgia [Unknown]
  - Pain in jaw [Unknown]
  - Swelling [Recovering/Resolving]
  - Anxiety [Recovered/Resolved]
  - Depression [Recovered/Resolved]
  - Pain [Unknown]
  - Chest pain [Unknown]

NARRATIVE: CASE EVENT DATE: 2019
